FAERS Safety Report 13846841 (Version 2)
Quarter: 2018Q2

REPORT INFORMATION
  Report Type: Spontaneous
  Country: US (occurrence: US)
  Receive Date: 20170808
  Receipt Date: 20180509
  Transmission Date: 20180711
  Serious: No
  Sender: FDA-Public Use
  Company Number: US-SA-2017SA104395

PATIENT

DRUGS (1)
  1. XYZAL ALLERGY 24HR [Suspect]
     Active Substance: LEVOCETIRIZINE DIHYDROCHLORIDE
     Indication: MULTIPLE ALLERGIES
     Route: 065

REACTIONS (4)
  - Hypersensitivity [Unknown]
  - Nightmare [Unknown]
  - Mood swings [Unknown]
  - Insomnia [Unknown]
